FAERS Safety Report 7085491-2 (Version None)
Quarter: 2010Q4

REPORT INFORMATION
  Report Type: 
  Country: None (occurrence: None)
  Receive Date: 20101105
  Receipt Date: 20101018
  Transmission Date: 20110411
  Serious: Yes (Other)
  Sender: FDA-Public Use
  Company Number: US-PFIZER INC-2010139458

PATIENT
  Sex: Female

DRUGS (13)
  1. LYRICA [Suspect]
     Indication: FIBROMYALGIA
     Dosage: 50 MG, 3X/DAY
     Route: 048
     Dates: start: 20091201, end: 20100901
  2. ENBREL [Suspect]
     Indication: PRODUCT USED FOR UNKNOWN INDICATION
     Dosage: 50 MG, WEEKLY
     Dates: start: 20100623, end: 20100101
  3. PRAVASTATIN [Concomitant]
     Dosage: 40 MG, ONE TIME DOSE
     Dates: start: 20080101
  4. LORTAB [Concomitant]
     Dosage: 10 MG, EVERY 6 HOURS
     Dates: start: 20080101
  5. ACETYLSALICYLIC ACID [Concomitant]
     Dosage: 81 MG, 1X/DAY
     Dates: start: 20080101
  6. CHLORTHALIDONE [Concomitant]
     Dosage: 25 MG, 2X/DAY
     Dates: start: 20080101
  7. DICLOFENAC [Concomitant]
     Dosage: 75 MG, 2X/DAY
     Dates: start: 20080101
  8. AMITRIPTYLINE [Concomitant]
     Dosage: 25 MG, 1X/DAY
     Dates: start: 20080101
  9. CYMBALTA [Concomitant]
     Dosage: 60 MG, 1X/DAY
     Dates: start: 20080101
  10. CALCIUM WITH VITAMIN D [Concomitant]
     Dosage: 600 MG, 1X/DAY
     Dates: start: 20080101
  11. LORAZEPAM [Concomitant]
     Dosage: 0.5 MG, 3X/DAY
     Dates: start: 20080101
  12. VITAMIN B-12 [Concomitant]
     Dosage: 1 ML, MONTHLY
     Route: 042
     Dates: start: 20080101
  13. PLAQUENIL [Concomitant]
     Dosage: 400 MG, 1X/DAY
     Dates: start: 20080101

REACTIONS (2)
  - HYPERSENSITIVITY [None]
  - WITHDRAWAL SYNDROME [None]
